FAERS Safety Report 9371448 (Version 1)
Quarter: 2013Q2

REPORT INFORMATION
  Report Type: Spontaneous
  Country: US (occurrence: US)
  Receive Date: 20130627
  Receipt Date: 20130627
  Transmission Date: 20140414
  Serious: No
  Sender: FDA-Public Use
  Company Number: US-BAYER-2013-077432

PATIENT
  Age: 43 Year
  Sex: Female
  Weight: 270 kg

DRUGS (5)
  1. BETASERON [Suspect]
     Dosage: 0.25 MG, QOD
     Route: 058
     Dates: start: 2011, end: 201305
  2. COPAXONE [Concomitant]
  3. DIOVAN [Concomitant]
  4. POTASSIUM [Concomitant]
  5. FUROSEMIDE [Concomitant]
     Dosage: UNK

REACTIONS (1)
  - Fluid retention [Unknown]
